FAERS Safety Report 9351105 (Version 1)
Quarter: 2013Q2

REPORT INFORMATION
  Report Type: Spontaneous
  Country: JP (occurrence: JP)
  Receive Date: 20130617
  Receipt Date: 20130617
  Transmission Date: 20140414
  Serious: No
  Sender: FDA-Public Use
  Company Number: JP-NOVOPROD-380318

PATIENT
  Age: 56 Year
  Sex: Male

DRUGS (2)
  1. LEVEMIR CHU FLEXPEN [Suspect]
     Indication: TYPE 1 DIABETES MELLITUS
     Dosage: 24 IU, QD
     Route: 065
  2. NOVORAPID CHU FLEXPEN [Suspect]
     Indication: TYPE 1 DIABETES MELLITUS
     Dosage: 24 IU, QD
     Route: 058

REACTIONS (2)
  - Cutaneous amyloidosis [Recovered/Resolved]
  - Injection site reaction [Recovered/Resolved]
